FAERS Safety Report 23565719 (Version 3)
Quarter: 2025Q3

REPORT INFORMATION
  Report Type: Spontaneous
  Country: EU (occurrence: EU)
  Receive Date: 20240226
  Receipt Date: 20250829
  Transmission Date: 20251020
  Serious: Yes (Hospitalization, Other)
  Sender: DR REDDYS
  Company Number: None

PATIENT
  Age: 41 Year
  Sex: Male

DRUGS (19)
  1. PREGABALIN [Suspect]
     Active Substance: PREGABALIN
     Indication: Visceral pain
     Dosage: 300 MG, 2X PER DAY
  2. VALPROIC ACID [Suspect]
     Active Substance: VALPROIC ACID
     Indication: Pain
  3. FENTANYL [Suspect]
     Active Substance: FENTANYL
     Indication: Visceral pain
     Dosage: 100 UG/H
     Route: 062
  4. FENTANYL [Suspect]
     Active Substance: FENTANYL
     Indication: Pain prophylaxis
     Route: 045
  5. FENTANYL [Suspect]
     Active Substance: FENTANYL
     Dosage: 50 UG/H
     Route: 062
  6. ACETAMINOPHEN [Suspect]
     Active Substance: ACETAMINOPHEN
     Indication: Visceral pain
     Dosage: 3 X 1 G
  7. SERTRALINE [Suspect]
     Active Substance: SERTRALINE HYDROCHLORIDE
     Indication: Affective disorder
     Dosage: 50 MG, 1X PER DAY, IN THE MORNING
  8. SERTRALINE [Suspect]
     Active Substance: SERTRALINE HYDROCHLORIDE
     Indication: Irritability
  9. SERTRALINE [Suspect]
     Active Substance: SERTRALINE HYDROCHLORIDE
     Indication: Sleep disorder
  10. SERTRALINE [Suspect]
     Active Substance: SERTRALINE HYDROCHLORIDE
     Indication: Tearfulness
  11. SERTRALINE [Suspect]
     Active Substance: SERTRALINE HYDROCHLORIDE
     Indication: Insomnia
  12. MIANSERIN [Suspect]
     Active Substance: MIANSERIN
     Indication: Affective disorder
     Dosage: 30 MG AT NIGHT
  13. MIANSERIN [Suspect]
     Active Substance: MIANSERIN
     Indication: Irritability
     Dosage: 30 MG IN THE EVENING
  14. MIANSERIN [Suspect]
     Active Substance: MIANSERIN
     Indication: Tearfulness
  15. MIANSERIN [Suspect]
     Active Substance: MIANSERIN
     Indication: Sleep disorder
  16. MIANSERIN [Suspect]
     Active Substance: MIANSERIN
     Indication: Insomnia
  17. BUTYLSCOPOLAMINE BROMIDE [Suspect]
     Active Substance: BUTYLSCOPOLAMINE BROMIDE
     Indication: Abdominal pain
     Dosage: 3 X 10 MG (10 MG 3 TIMES DAILY)
     Route: 048
  18. BUTYLSCOPOLAMINE BROMIDE [Suspect]
     Active Substance: BUTYLSCOPOLAMINE BROMIDE
     Indication: Pain
     Dosage: 3 X 10 MG (IN CASE OF ATTACK OF PAIN)
     Route: 048
  19. BUTYLSCOPOLAMINE BROMIDE [Suspect]
     Active Substance: BUTYLSCOPOLAMINE BROMIDE
     Indication: Visceral pain
     Dosage: 3 X 10 MG
     Route: 048

REACTIONS (7)
  - Hyperaesthesia [Recovered/Resolved]
  - Medication error [Unknown]
  - Drug interaction [Unknown]
  - Neurotoxicity [Recovered/Resolved]
  - Hypersomnia [Recovering/Resolving]
  - Condition aggravated [Recovering/Resolving]
  - Somnolence [Recovering/Resolving]
